FAERS Safety Report 7287687 (Version 2)
Quarter: 2012Q4

REPORT INFORMATION
  Report Type: Report from Study
  Country: US (occurrence: US)
  Receive Date: 20100222
  Receipt Date: 20121126
  Transmission Date: 20130627
  Serious: Yes (Hospitalization)
  Sender: FDA-Public Use
  Company Number: US-ELI_LILLY_AND_COMPANY-US201002003906

PATIENT
  Age: 52 Year
  Sex: Female
  Weight: 46 kg

DRUGS (12)
  1. PEMETREXED [Suspect]
     Indication: NON-SMALL CELL LUNG CANCER
     Dosage: 400 mg/m2, other
     Route: 042
     Dates: start: 20100129, end: 20100222
  2. GEMCITABINE HYDROCHLORIDE [Suspect]
     Indication: NON-SMALL CELL LUNG CANCER
     Dosage: 1200 mg/m2, other
     Route: 042
     Dates: start: 20100129, end: 20100222
  3. BEVACIZUMAB [Suspect]
     Indication: NON-SMALL CELL LUNG CANCER
     Dosage: 10 mg/kg, other
     Route: 042
     Dates: start: 20100129, end: 20100222
  4. MORPHINE SULFATE [Concomitant]
  5. DILAUDID [Concomitant]
  6. FOLIC ACID [Concomitant]
  7. DOCUSATE [Concomitant]
  8. XANAX [Concomitant]
  9. CIPRO [Concomitant]
  10. VITAMIN B-12 [Concomitant]
     Dates: end: 20100122
  11. CELECOXIB [Concomitant]
  12. LACTULOSE [Concomitant]

REACTIONS (2)
  - Pulmonary embolism [Recovering/Resolving]
  - Chest pain [Unknown]
